FAERS Safety Report 6243219-X (Version None)
Quarter: 2009Q2

REPORT INFORMATION
  Report Type: 
  Country: None (occurrence: None)
  Receive Date: 20090622
  Receipt Date: 20090622
  Transmission Date: 20091009
  Serious: No
  Sender: FDA-Public Use
  Company Number: None

PATIENT
  Sex: Female
  Weight: 74.8435 kg

DRUGS (1)
  1. FLONASE [Suspect]
     Indication: RHINITIS ALLERGIC
     Dosage: 2 SPRAYS QDAY NASAL (DURATION: ESTIMATE 5+ YEARS)
     Route: 045

REACTIONS (2)
  - ANOSMIA [None]
  - HYPOSMIA [None]
